FAERS Safety Report 10528820 (Version 2)
Quarter: 2015Q1

REPORT INFORMATION
  Report Type: Report from Study
  Country: DE (occurrence: DE)
  Receive Date: 20141020
  Receipt Date: 20150128
  Transmission Date: 20150720
  Serious: Yes (Hospitalization, Other)
  Sender: FDA-Public Use
  Company Number: DE-SA-2014SA140800

PATIENT
  Sex: Male
  Weight: 105 kg

DRUGS (12)
  1. LANTUS [Suspect]
     Active Substance: INSULIN GLARGINE
     Indication: TYPE 2 DIABETES MELLITUS
     Dosage: DOSE:10 UNIT(S)
     Route: 065
     Dates: start: 20140117
  2. PREDNISOLONE. [Concomitant]
     Active Substance: PREDNISOLONE
  3. LANTUS [Suspect]
     Active Substance: INSULIN GLARGINE
     Indication: TYPE 2 DIABETES MELLITUS
     Dosage: DOSE:20 UNIT(S)
     Route: 065
     Dates: start: 20141223
  4. FENTANYL. [Concomitant]
     Active Substance: FENTANYL
  5. CARBIDOPA/LEVODOPA [Concomitant]
  6. AMLODIPINE [Concomitant]
     Active Substance: AMLODIPINE BESYLATE
  7. UDC [Concomitant]
  8. VALSARTAN. [Concomitant]
     Active Substance: VALSARTAN
  9. PRAMIPEXOL [Concomitant]
     Active Substance: PRAMIPEXOLE
  10. CYMBALTA [Concomitant]
     Active Substance: DULOXETINE HYDROCHLORIDE
  11. LANTUS [Suspect]
     Active Substance: INSULIN GLARGINE
     Indication: TYPE 2 DIABETES MELLITUS
     Dosage: DOSE:30 UNIT(S)
     Route: 065
     Dates: start: 20140407
  12. HUMALOG MIX [Concomitant]
     Active Substance: INSULIN LISPRO

REACTIONS (5)
  - Urosepsis [Recovered/Resolved]
  - Visual impairment [Not Recovered/Not Resolved]
  - Hospitalisation [Unknown]
  - Skin abrasion [Recovered/Resolved]
  - Back pain [Recovered/Resolved]

NARRATIVE: CASE EVENT DATE: 20140203
